FAERS Safety Report 6724547-8 (Version None)
Quarter: 2010Q2

REPORT INFORMATION
  Report Type: 
  Country: None (occurrence: None)
  Receive Date: 20100513
  Receipt Date: 20100503
  Transmission Date: 20101027
  Serious: Yes (Other)
  Sender: FDA-Public Use
  Company Number: US-PFIZER INC-2010033572

PATIENT
  Sex: Male
  Weight: 86.168 kg

DRUGS (11)
  1. CHANTIX [Suspect]
     Indication: SMOKING CESSATION THERAPY
     Dosage: 0.5 MG, 1X/DAY
     Route: 048
     Dates: start: 20100314
  2. CYCLOBENZAPRINE [Suspect]
     Indication: MUSCLE RELAXANT THERAPY
     Dosage: 15 MG, 2X/DAY
  3. BUPROPION [Concomitant]
  4. NICOTINE [Concomitant]
  5. TOPAMAX [Concomitant]
     Indication: PAIN
     Dosage: FREQUENCY; AS NEEDED
     Route: 048
     Dates: start: 20040101
  6. TRAZODONE [Concomitant]
     Indication: PAIN
     Dosage: FREQUENCY; AS NEEDED
     Route: 048
  7. CODEINE [Concomitant]
     Route: 048
  8. NAPROXEN [Concomitant]
     Dosage: 500 MG, UNK
  9. FISH OIL [Concomitant]
     Dosage: UNK
     Route: 048
  10. DOXYCYCLINE [Concomitant]
     Indication: HYPERSENSITIVITY
     Dosage: 100 MG, 2X/DAY
  11. IBUPROFEN [Concomitant]
     Dosage: UNK

REACTIONS (42)
  - ABNORMAL DREAMS [None]
  - ALCOHOL USE [None]
  - ANGER [None]
  - BURNING SENSATION [None]
  - CARTILAGE INJURY [None]
  - CONFUSIONAL STATE [None]
  - CONSTIPATION [None]
  - DEPRESSED MOOD [None]
  - DRUG DOSE OMISSION [None]
  - DRUG INEFFECTIVE [None]
  - DYSGEUSIA [None]
  - DYSPEPSIA [None]
  - DYSPNOEA [None]
  - EMOTIONAL DISORDER [None]
  - FATIGUE [None]
  - FEELING ABNORMAL [None]
  - FLATULENCE [None]
  - FRUSTRATION [None]
  - HAND FRACTURE [None]
  - HEADACHE [None]
  - HYPERACUSIS [None]
  - HYPOAESTHESIA [None]
  - HYPOVENTILATION [None]
  - IRRITABILITY [None]
  - JOINT INJURY [None]
  - JOINT SWELLING [None]
  - MIDDLE INSOMNIA [None]
  - MUSCLE RUPTURE [None]
  - MUSCLE SPASMS [None]
  - NAUSEA [None]
  - NOCTURNAL EMISSION [None]
  - PAIN [None]
  - PARANOIA [None]
  - PARTNER STRESS [None]
  - RESTLESSNESS [None]
  - SINUS DISORDER [None]
  - TINNITUS [None]
  - TOOTH FRACTURE [None]
  - TREATMENT NONCOMPLIANCE [None]
  - VISUAL IMPAIRMENT [None]
  - VOMITING [None]
  - WEIGHT INCREASED [None]
